FAERS Safety Report 23831086 (Version 1)
Quarter: 2024Q2

REPORT INFORMATION
  Report Type: Spontaneous
  Country: US (occurrence: None)
  Receive Date: 20240507
  Receipt Date: 20240507
  Transmission Date: 20240716
  Serious: No
  Sender: FDA-Public Use
  Company Number: None

PATIENT
  Sex: Female
  Weight: 3.2 kg

DRUGS (4)
  1. LURASIDONE [Suspect]
     Active Substance: LURASIDONE
     Indication: Depression
     Dates: start: 20190927
  2. ESCITALOPRAM [Concomitant]
     Active Substance: ESCITALOPRAM OXALATE
  3. CLONAZEPAM [Concomitant]
     Active Substance: CLONAZEPAM
  4. VENLAFAXINE HYDROCHLORIDE [Concomitant]
     Active Substance: VENLAFAXINE HYDROCHLORIDE

REACTIONS (4)
  - Pyelocaliectasis [None]
  - Maternal exposure during pregnancy [None]
  - Hydronephrosis [None]
  - Tethered oral tissue [None]

NARRATIVE: CASE EVENT DATE: 20200424
